FAERS Safety Report 5087377-1 (Version None)
Quarter: 2006Q3

REPORT INFORMATION
  Report Type: 
  Country: None (occurrence: None)
  Receive Date: 20060824
  Receipt Date: 20060816
  Transmission Date: 20061208
  Serious: Yes (Other)
  Sender: FDA-Public Use
  Company Number: 2006UW16366

PATIENT
  Age: 65 Year
  Sex: Female

DRUGS (7)
  1. ARIMIDEX [Suspect]
     Indication: INFLAMMATORY CARCINOMA OF THE BREAST
     Route: 048
     Dates: start: 20051101
  2. CHEMOTHERAPY [Suspect]
     Indication: INFLAMMATORY CARCINOMA OF THE BREAST
  3. RADIATION [Suspect]
     Indication: INFLAMMATORY CARCINOMA OF THE BREAST
  4. HERCEPTIN [Suspect]
     Indication: INFLAMMATORY CARCINOMA OF THE BREAST
  5. GLEEVEC [Concomitant]
  6. TOPROL-XL [Concomitant]
     Route: 048
  7. PROTONIX [Concomitant]

REACTIONS (3)
  - CARDIAC DISORDER [None]
  - CARDIAC FAILURE [None]
  - FATIGUE [None]
